FAERS Safety Report 25341457 (Version 2)
Quarter: 2025Q2

REPORT INFORMATION
  Report Type: Report from Study
  Country: DE (occurrence: DE)
  Receive Date: 20250521
  Receipt Date: 20250612
  Transmission Date: 20250716
  Serious: Yes (Hospitalization)
  Sender: INSMED
  Company Number: DE-INSMED, INC.-2025-00713-DE

PATIENT
  Age: 62 Year
  Sex: Male

DRUGS (1)
  1. ARIKAYCE [Suspect]
     Active Substance: AMIKACIN
     Indication: Atypical mycobacterial infection
     Dosage: 590 MILLIGRAM, QD
     Route: 055
     Dates: start: 20231026, end: 20250223

REACTIONS (5)
  - Hospitalisation [Unknown]
  - General physical health deterioration [Recovering/Resolving]
  - Dyspnoea [Recovering/Resolving]
  - Productive cough [Recovering/Resolving]
  - Therapy interrupted [Unknown]
